FAERS Safety Report 5773160-8 (Version None)
Quarter: 2008Q2

REPORT INFORMATION
  Report Type: 
  Country: None (occurrence: None)
  Receive Date: 20080616
  Receipt Date: 20080314
  Transmission Date: 20081010
  Serious: No
  Sender: FDA-Public Use
  Company Number: US-BAYER-200811178BCC

PATIENT
  Age: 50 Year
  Sex: Male
  Weight: 73 kg

DRUGS (1)
  1. ALEVE [Suspect]
     Indication: PAIN
     Dosage: UNIT DOSE: 220 MG
     Route: 048

REACTIONS (1)
  - DIARRHOEA [None]
